FAERS Safety Report 21231799 (Version 1)
Quarter: 2022Q3

REPORT INFORMATION
  Report Type: Other
  Country: CA (occurrence: CA)
  Receive Date: 20220819
  Receipt Date: 20220819
  Transmission Date: 20221027
  Serious: Yes (Hospitalization)
  Sender: FDA-Public Use
  Company Number: CA-PFIZER INC-202201067816

PATIENT

DRUGS (1)
  1. METHOTREXATE SODIUM [Suspect]
     Active Substance: METHOTREXATE SODIUM
     Indication: Inflammation
     Route: 065

REACTIONS (5)
  - Drug monitoring procedure not performed [Unknown]
  - Mucosal inflammation [Unknown]
  - Pancytopenia [Unknown]
  - Product prescribing error [Unknown]
  - Toxicity to various agents [Unknown]
